FAERS Safety Report 6342874-3 (Version None)
Quarter: 2009Q3

REPORT INFORMATION
  Report Type: 
  Country: None (occurrence: None)
  Receive Date: 20090908
  Receipt Date: 20090824
  Transmission Date: 20100115
  Serious: Yes (Other)
  Sender: FDA-Public Use
  Company Number: NL-ROCHE-651724

PATIENT
  Sex: Male

DRUGS (1)
  1. MIRCERA [Suspect]
     Indication: DRUG USE FOR UNKNOWN INDICATION
     Dosage: LAST DOSE PRIOR SAE: 27 JULY 2009.
     Route: 065

REACTIONS (2)
  - GASTROINTESTINAL DISORDER [None]
  - THERAPEUTIC RESPONSE DECREASED [None]
